FAERS Safety Report 6102104-4 (Version None)
Quarter: 2009Q1

REPORT INFORMATION
  Report Type: 
  Country: None (occurrence: None)
  Receive Date: 20090304
  Receipt Date: 20090226
  Transmission Date: 20090719
  Serious: Yes (Hospitalization)
  Sender: FDA-Public Use
  Company Number: AR-PFIZER INC-2009176359

PATIENT

DRUGS (5)
  1. BLINDED *EFAVIRENZ [Suspect]
     Indication: HIV INFECTION
     Dosage: 150 MG/ 300 MG
     Route: 048
     Dates: start: 20080125, end: 20080825
  2. BLINDED *PLACEBO [Suspect]
     Indication: HIV INFECTION
     Dosage: 150 MG/ 300 MG
     Route: 048
     Dates: start: 20080125, end: 20080825
  3. BLINDED MARAVIROC [Suspect]
     Indication: HIV INFECTION
     Dosage: 150 MG/ 300 MG
     Route: 048
     Dates: start: 20080125, end: 20080825
  4. LAMIVUDINE AND ZIDOVUDINE [Suspect]
     Indication: HIV INFECTION
     Dosage: UNK
     Route: 048
     Dates: start: 20080125, end: 20080825
  5. EFAVIRENZ [Suspect]
     Indication: HIV INFECTION
     Dosage: 600 MG, 1X/DAY
     Route: 048
     Dates: start: 20080125, end: 20080825

REACTIONS (1)
  - HYPERGLYCAEMIA [None]
